FAERS Safety Report 8102722-8 (Version None)
Quarter: 2012Q1

REPORT INFORMATION
  Report Type: 
  Country: None (occurrence: None)
  Receive Date: 20120201
  Receipt Date: 20120120
  Transmission Date: 20120608
  Serious: Yes (Other)
  Sender: FDA-Public Use
  Company Number: FR-BRISTOL-MYERS SQUIBB COMPANY-15664717

PATIENT
  Age: 79 Year
  Sex: Female

DRUGS (9)
  1. PREVISCAN [Suspect]
     Dosage: 1DF=1TAB
     Route: 048
     Dates: start: 20101109, end: 20101110
  2. LEVOTHYROXINE SODIUM [Concomitant]
  3. ATENOLOL [Concomitant]
  4. COLPOTROPHINE [Suspect]
     Dates: start: 20091109, end: 20101207
  5. COUMADIN [Suspect]
     Route: 048
     Dates: start: 20101112, end: 20101130
  6. FRAXODI [Suspect]
     Dosage: 1DF=15 200 IU AXA/0.8 ML,08NOV10-11NOV10,30NOV10-23FEB11
     Route: 058
     Dates: start: 20101108, end: 20110223
  7. LASIX [Suspect]
     Dosage: TABLET
     Route: 048
     Dates: start: 20101015, end: 20101207
  8. APIDRA [Concomitant]
  9. LANTUS [Concomitant]

REACTIONS (3)
  - CONDITION AGGRAVATED [None]
  - EOSINOPHILIA [None]
  - TOXIC SKIN ERUPTION [None]
